FAERS Safety Report 4377180-X (Version None)
Quarter: 2004Q2

REPORT INFORMATION
  Report Type: 
  Country: None (occurrence: None)
  Receive Date: 20040609
  Receipt Date: 20040227
  Transmission Date: 20050107
  Serious: No
  Sender: FDA-Public Use
  Company Number: 2004201507US

PATIENT
  Age: 76 Year
  Sex: Female

DRUGS (4)
  1. BEXTRA [Suspect]
     Dosage: 20 MG, QD
     Dates: start: 20030101, end: 20040101
  2. ALTACE [Concomitant]
  3. PERSANTIN INJ [Concomitant]
  4. ATENOLOL [Concomitant]

REACTIONS (2)
  - FEELING ABNORMAL [None]
  - HEART RATE IRREGULAR [None]
